FAERS Safety Report 7509279-0 (Version None)
Quarter: 2011Q2

REPORT INFORMATION
  Report Type: 
  Country: None (occurrence: None)
  Receive Date: 20110527
  Receipt Date: 20110523
  Transmission Date: 20111010
  Serious: Yes (Other)
  Sender: FDA-Public Use
  Company Number: SE-ROCHE-778594

PATIENT
  Sex: Male

DRUGS (5)
  1. KINERET [Concomitant]
  2. RITUXAN [Suspect]
     Route: 065
     Dates: start: 20090101
  3. REMICADE [Concomitant]
     Dates: start: 20000101, end: 20080101
  4. ACTEMRA [Suspect]
     Dosage: START DATE: 2009-2011
     Route: 065
     Dates: start: 20090101
  5. HUMIRA [Concomitant]
     Dates: start: 20080101, end: 20090101

REACTIONS (6)
  - CEREBROVASCULAR ACCIDENT [None]
  - DRUG INEFFECTIVE [None]
  - FATIGUE [None]
  - RASH [None]
  - MUSCULOSKELETAL PAIN [None]
  - ATRIAL FIBRILLATION [None]
